FAERS Safety Report 16112984 (Version 2)
Quarter: 2019Q1

REPORT INFORMATION
  Report Type: Spontaneous
  Country: GB (occurrence: GB)
  Receive Date: 20190325
  Receipt Date: 20190328
  Transmission Date: 20190418
  Serious: Yes (Death, Other)
  Sender: FDA-Public Use
  Company Number: PHHY2019GB067014

PATIENT
  Age: 24 Year
  Sex: Female

DRUGS (3)
  1. DACARBAZINE. [Suspect]
     Active Substance: DACARBAZINE
     Indication: OSTEOSARCOMA
     Dosage: 450 MG, CYCLIC
     Route: 065
     Dates: end: 197606
  2. DOXORUBICIN [Suspect]
     Active Substance: DOXORUBICIN
     Indication: OSTEOSARCOMA
     Dosage: 540 MG/M2, CYCLIC
     Route: 065
     Dates: end: 197606
  3. METHOTREXATE. [Suspect]
     Active Substance: METHOTREXATE
     Indication: OSTEOSARCOMA
     Dosage: 480 MG, CYCLIC
     Route: 065
     Dates: end: 197606

REACTIONS (3)
  - Leukaemia [Fatal]
  - Acute myeloid leukaemia [Unknown]
  - Second primary malignancy [Unknown]

NARRATIVE: CASE EVENT DATE: 198408
